FAERS Safety Report 6627768-8 (Version None)
Quarter: 2010Q1

REPORT INFORMATION
  Report Type: 
  Country: None (occurrence: None)
  Receive Date: 20100311
  Receipt Date: 20100304
  Transmission Date: 20100710
  Serious: Yes (Hospitalization)
  Sender: FDA-Public Use
  Company Number: DE-BRISTOL-MYERS SQUIBB COMPANY-15007578

PATIENT
  Age: 77 Year
  Sex: Female

DRUGS (6)
  1. COAPROVEL FILM-COATED TABS [Suspect]
     Route: 048
  2. NOVALGIN [Interacting]
     Indication: PAIN
     Dosage: 1 DF= 500MG/ML
     Route: 048
  3. AMLODIPINE [Interacting]
     Route: 065
  4. NEBILET [Interacting]
     Route: 065
  5. ASPIRIN [Concomitant]
  6. TRANSTEC [Concomitant]

REACTIONS (2)
  - BLOOD PRESSURE INCREASED [None]
  - DRUG INTERACTION [None]
